FAERS Safety Report 19709184 (Version 1)
Quarter: 2021Q3

REPORT INFORMATION
  Report Type: Spontaneous
  Country: US (occurrence: US)
  Receive Date: 20210817
  Receipt Date: 20210817
  Transmission Date: 20211014
  Serious: No
  Sender: FDA-Public Use
  Company Number: US-009507513-2108USA002038

PATIENT
  Sex: Female
  Weight: 53.52 kg

DRUGS (1)
  1. PRINIVIL [Suspect]
     Active Substance: LISINOPRIL
     Dosage: UNK; FORMULATION REPORTED AS 2.5 MG ORAL TABLET
     Route: 048

REACTIONS (1)
  - Drug hypersensitivity [Unknown]
